FAERS Safety Report 9318913 (Version 3)
Quarter: 2013Q4

REPORT INFORMATION
  Report Type: Spontaneous
  Country: JP (occurrence: JP)
  Receive Date: 20130530
  Receipt Date: 20131022
  Transmission Date: 20140711
  Serious: Yes (Other)
  Sender: FDA-Public Use
  Company Number: JP-ELI_LILLY_AND_COMPANY-JP201305005591

PATIENT
  Age: 43 Year
  Sex: Female

DRUGS (2)
  1. HUMATROPE [Suspect]
     Indication: GROWTH HORMONE DEFICIENCY
     Dosage: UNK
     Route: 058
     Dates: start: 2007, end: 20130718
  2. HUMATROPE [Suspect]
     Dosage: UNK
     Route: 058
     Dates: start: 20130910

REACTIONS (1)
  - Pituitary tumour benign [Recovered/Resolved]
